FAERS Safety Report 8947752 (Version 1)
Quarter: 2012Q4

REPORT INFORMATION
  Report Type: 
  Country: US (occurrence: US)
  Receive Date: 20121204
  Receipt Date: 20121204
  Transmission Date: 20130627
  Serious: No
  Sender: FDA-Public Use
  Company Number: US-ASTRAZENECA-2012SE88236

PATIENT
  Age: 77 Year
  Sex: Female

DRUGS (2)
  1. ANASTROZOLE [Suspect]
     Route: 048
  2. ANASTROZOLE [Suspect]
     Dosage: GENERIC
     Route: 048

REACTIONS (4)
  - Pain in extremity [Unknown]
  - Adverse event [Unknown]
  - Carpal tunnel syndrome [Unknown]
  - Trigger finger [Unknown]
